FAERS Safety Report 9653391 (Version 2)
Quarter: 2013Q4

REPORT INFORMATION
  Report Type: Report from Study
  Country: JP (occurrence: JP)
  Receive Date: 20131029
  Receipt Date: 20131029
  Transmission Date: 20140711
  Serious: Yes (Hospitalization, Other)
  Sender: FDA-Public Use
  Company Number: JP-TAKEDA-TCI2013A03751

PATIENT
  Age: 66 Year
  Sex: Male
  Weight: 63 kg

DRUGS (4)
  1. NESINA TABLETS 12.5MG [Suspect]
     Route: 048
     Dates: start: 20111005, end: 20120727
  2. AMARYL [Concomitant]
     Indication: TYPE 2 DIABETES MELLITUS
     Route: 048
     Dates: start: 20020621
  3. LIPIDIL [Concomitant]
     Route: 048
     Dates: start: 20040528
  4. ZETIA [Concomitant]
     Route: 048
     Dates: start: 20110420

REACTIONS (2)
  - Hepatic cancer [Recovered/Resolved]
  - Diabetes mellitus inadequate control [Recovering/Resolving]
